FAERS Safety Report 10136729 (Version 1)
Quarter: 2014Q2

REPORT INFORMATION
  Report Type: Spontaneous
  Country: US (occurrence: None)
  Receive Date: 20140428
  Receipt Date: 20140428
  Transmission Date: 20141212
  Serious: No
  Sender: FDA-Public Use
  Company Number: None

PATIENT
  Age: 70 Year
  Sex: Female

DRUGS (3)
  1. RIBASHERE [Suspect]
     Indication: CHRONIC HEPATITIS C
     Dosage: TAKE 400 MG BY MOUTH EVERY MORNING AND TAKE EVERY EVENING
     Route: 048
     Dates: start: 20140210
  2. SOVALDI 400MG TABLET [Concomitant]
  3. PEGASYS PROCLICK 180MCG/0.5ML AUTO INJ [Concomitant]

REACTIONS (1)
  - Anaemia [None]
